FAERS Safety Report 6358627-6 (Version None)
Quarter: 2009Q3

REPORT INFORMATION
  Report Type: 
  Country: None (occurrence: None)
  Receive Date: 20090914
  Receipt Date: 20090910
  Transmission Date: 20100115
  Serious: No
  Sender: FDA-Public Use
  Company Number: C-09-0204-W

PATIENT
  Age: 61 Year
  Sex: Female
  Weight: 66.2252 kg

DRUGS (4)
  1. ENALAPRIL MALEATE [Suspect]
     Indication: HYPERTENSION
     Dosage: ONE TABLET DAILY 047
     Dates: start: 20081101, end: 20090801
  2. SYNTHROID [Concomitant]
  3. FISH OIL TABLETS [Concomitant]
  4. HYDROCHLOROTHIAZIDE [Concomitant]

REACTIONS (8)
  - ABDOMINAL PAIN UPPER [None]
  - ANTINUCLEAR ANTIBODY POSITIVE [None]
  - BACK PAIN [None]
  - BILE DUCT STONE [None]
  - DRUG HYPERSENSITIVITY [None]
  - EOSINOPHILIA [None]
  - MUSCLE SPASMS [None]
  - POLYMYALGIA RHEUMATICA [None]
